FAERS Safety Report 7631814-2 (Version None)
Quarter: 2011Q3

REPORT INFORMATION
  Report Type: 
  Country: None (occurrence: None)
  Receive Date: 20110725
  Receipt Date: 20110518
  Transmission Date: 20111222
  Serious: Yes (Other)
  Sender: FDA-Public Use
  Company Number: US-BRISTOL-MYERS SQUIBB COMPANY-15654932

PATIENT
  Sex: Female

DRUGS (1)
  1. COUMADIN [Suspect]
     Indication: HIP ARTHROPLASTY
     Dates: start: 20110301

REACTIONS (2)
  - SKIN DISCOLOURATION [None]
  - OEDEMA PERIPHERAL [None]
